FAERS Safety Report 25017705 (Version 1)
Quarter: 2025Q1

REPORT INFORMATION
  Report Type: Report from Study
  Country: CA (occurrence: CA)
  Receive Date: 20250227
  Receipt Date: 20250227
  Transmission Date: 20250409
  Serious: Yes (Death)
  Sender: BAYER HEALTHCARE PHARMACEUTICALS INC.
  Company Number: CA-BAYER-2025A023547

PATIENT
  Sex: Male

DRUGS (2)
  1. NUBEQA [Suspect]
     Active Substance: DAROLUTAMIDE
     Indication: Hormone-dependent prostate cancer
     Dosage: 600 MG, BID
     Route: 048
     Dates: start: 20230420
  2. DOCETAXEL [Concomitant]
     Active Substance: DOCETAXEL

REACTIONS (1)
  - Death [Fatal]
